FAERS Safety Report 8902811 (Version 2)
Quarter: 2012Q4

REPORT INFORMATION
  Report Type: Report from Study
  Country: US (occurrence: US)
  Receive Date: 20121112
  Receipt Date: 20121121
  Transmission Date: 20130627
  Serious: Yes (Hospitalization)
  Sender: FDA-Public Use
  Company Number: US-ACTELION-A-US2012-73972

PATIENT
  Age: 57 Year
  Sex: Female

DRUGS (2)
  1. TRACLEER [Suspect]
     Indication: PULMONARY ARTERIAL HYPERTENSION
     Dosage: UNK
     Route: 048
  2. COUMADIN [Concomitant]

REACTIONS (2)
  - Biliary dyskinesia [Recovered/Resolved]
  - Gallbladder operation [Recovered/Resolved]
